FAERS Safety Report 6492594-X (Version None)
Quarter: 2009Q4

REPORT INFORMATION
  Report Type: 
  Country: None (occurrence: None)
  Receive Date: 20091211
  Receipt Date: 20091211
  Transmission Date: 20100525
  Serious: No
  Sender: FDA-Public Use
  Company Number: None

PATIENT
  Age: 57 Year
  Sex: Female
  Weight: 78.9259 kg

DRUGS (1)
  1. TRIAMCINOLONE ACETONIDE [Suspect]
     Indication: EXPOSURE TO TOXIC AGENT
     Dosage: APPLY TOPICAL 2/DAY
     Route: 061
     Dates: start: 20091116, end: 20091118

REACTIONS (1)
  - APPLICATION SITE PAIN [None]
